FAERS Safety Report 7816502-1 (Version None)
Quarter: 2011Q4

REPORT INFORMATION
  Report Type: 
  Country: None (occurrence: None)
  Receive Date: 20111017
  Receipt Date: 20111003
  Transmission Date: 20120403
  Serious: Yes (Hospitalization)
  Sender: FDA-Public Use
  Company Number: US-ELI_LILLY_AND_COMPANY-US201106002049

PATIENT
  Sex: Female

DRUGS (16)
  1. FORTEO [Suspect]
     Dosage: 20 UG, 3/W
     Dates: start: 20110729
  2. CALCIUM CARBONATE [Concomitant]
     Dosage: 600 MG, BID
  3. LYRICA [Concomitant]
     Dosage: 50 MG, QD
  4. FORTEO [Suspect]
     Indication: OSTEOPOROSIS
     Dosage: 20 UG, QD
     Route: 065
     Dates: start: 20110501, end: 20110601
  5. ACTOS [Concomitant]
     Dosage: 15 MG, QD
  6. PREDNISONE [Concomitant]
     Dosage: 2 MG, QD
  7. VENTOLIN                                /SCH/ [Concomitant]
     Dosage: UNK, PRN
  8. VITAMIN D [Concomitant]
     Dosage: 1.2 MG, WEEKLY (1/W)
  9. FUROSEMIDE [Concomitant]
     Dosage: 20 MG, PRN
  10. LISINOPRIL [Concomitant]
     Dosage: 20 MG, QD
  11. PLAQUENIL [Concomitant]
     Dosage: 200 MG, BID
  12. MOBIC [Concomitant]
     Dosage: 50 MG, QD
  13. METFORMIN HYDROCHLORIDE [Concomitant]
     Dosage: 5 MG, BID
  14. SPIRIVA [Concomitant]
     Dosage: 1 DF, QD
  15. NORVASC [Concomitant]
     Dosage: 5 MG, QD
  16. POTASSIUM CHLORIDE [Concomitant]
     Dosage: 10 MEQ, PRN

REACTIONS (9)
  - PAIN IN JAW [None]
  - HEADACHE [None]
  - DRUG DOSE OMISSION [None]
  - THYROID CYST [None]
  - DYSPNOEA [None]
  - NAUSEA [None]
  - DIZZINESS [None]
  - INTENTIONAL DRUG MISUSE [None]
  - NECK PAIN [None]
